FAERS Safety Report 5843446-7 (Version None)
Quarter: 2008Q3

REPORT INFORMATION
  Report Type: 
  Country: None (occurrence: None)
  Receive Date: 20080813
  Receipt Date: 20080811
  Transmission Date: 20090109
  Serious: Yes (Hospitalization)
  Sender: FDA-Public Use
  Company Number: DE-WYE-G01986108

PATIENT
  Sex: Male
  Weight: 80 kg

DRUGS (3)
  1. TREVILOR [Suspect]
     Dosage: OVERDOSE AMOUNT UNKNOWN
     Route: 048
     Dates: start: 20080809, end: 20080809
  2. ZOPICLONE [Suspect]
     Dosage: 20 TABLETS (OVERDOSE AMOUNT 150 MG)
     Route: 048
     Dates: start: 20080809, end: 20080809
  3. LITHIUM CARBONATE [Suspect]
     Dosage: OVERDOSE AMOUNT UNKNOWN
     Route: 048
     Dates: start: 20080809, end: 20080809

REACTIONS (4)
  - DEPRESSED LEVEL OF CONSCIOUSNESS [None]
  - DYSARTHRIA [None]
  - INTENTIONAL OVERDOSE [None]
  - SUICIDE ATTEMPT [None]
